FAERS Safety Report 10935287 (Version 2)
Quarter: 2015Q1

REPORT INFORMATION
  Report Type: Report from Study
  Country: JP (occurrence: JP)
  Receive Date: 20150320
  Receipt Date: 20150330
  Transmission Date: 20150721
  Serious: Yes (Hospitalization)
  Sender: FDA-Public Use
  Company Number: JP-EISAI MEDICAL RESEARCH-EC-2015-005122

PATIENT
  Age: 77 Year
  Sex: Male
  Weight: 57 kg

DRUGS (10)
  1. LENVATINIB [Suspect]
     Active Substance: LENVATINIB
     Indication: HEPATOCELLULAR CARCINOMA
     Route: 048
     Dates: start: 20140912
  2. GASTROM [Concomitant]
     Active Substance: ECABET
  3. MECOBALAMIN [Concomitant]
     Active Substance: METHYLCOBALAMIN
  4. FEBURIC [Concomitant]
     Active Substance: FEBUXOSTAT
  5. ENSURE LIQUID [Concomitant]
  6. NEXIUM [Concomitant]
     Active Substance: ESOMEPRAZOLE MAGNESIUM
  7. NORVASC [Concomitant]
     Active Substance: AMLODIPINE BESYLATE
  8. OPALMON [Concomitant]
     Active Substance: LIMAPROST
  9. GIBONZ [Concomitant]
  10. TRAMAL [Concomitant]
     Active Substance: TRAMADOL

REACTIONS (1)
  - Pneumonia [Not Recovered/Not Resolved]

NARRATIVE: CASE EVENT DATE: 20150313
